FAERS Safety Report 25509451 (Version 1)
Quarter: 2025Q3

REPORT INFORMATION
  Report Type: Spontaneous
  Country: US (occurrence: None)
  Receive Date: 20250702
  Receipt Date: 20250702
  Transmission Date: 20251021
  Serious: Yes (Hospitalization)
  Sender: FDA-CTU
  Company Number: None

PATIENT
  Sex: Female

DRUGS (5)
  1. WINREVAIR [Suspect]
     Active Substance: SOTATERCEPT-CSRK
     Indication: Pulmonary arterial hypertension
     Route: 058
     Dates: start: 20250627
  2. REMODULIN [Suspect]
     Active Substance: TREPROSTINIL
  3. ORENCIA [Suspect]
     Active Substance: ABATACEPT
     Indication: Rheumatoid arthritis
  4. ADEMPAS [Suspect]
     Active Substance: RIOCIGUAT
  5. OPSUMIT [Concomitant]
     Active Substance: MACITENTAN

REACTIONS (1)
  - Oxygen saturation decreased [None]
